FAERS Safety Report 25971045 (Version 2)
Quarter: 2025Q4

REPORT INFORMATION
  Report Type: Spontaneous
  Country: US (occurrence: US)
  Receive Date: 20251028
  Receipt Date: 20251110
  Transmission Date: 20260117
  Serious: No
  Sender: JOHNSON AND JOHNSON
  Company Number: US-JNJFOC-20251022558

PATIENT

DRUGS (2)
  1. STELARA [Suspect]
     Active Substance: USTEKINUMAB
     Indication: Crohn^s disease
     Route: 058
  2. SPIKEVAX [Suspect]
     Active Substance: CX-046684
     Indication: COVID-19
     Dosage: EVERY 6 MONTHS (OFF LABEL USE)
     Dates: start: 202505

REACTIONS (1)
  - Therapeutic product effect incomplete [Unknown]
